FAERS Safety Report 23716426 (Version 4)
Quarter: 2024Q2

REPORT INFORMATION
  Report Type: Spontaneous
  Country: BR (occurrence: BR)
  Receive Date: 20240408
  Receipt Date: 20240417
  Transmission Date: 20240715
  Serious: Yes (Other)
  Sender: FDA-Public Use
  Company Number: BR-JNJFOC-20240401553

PATIENT
  Sex: Male

DRUGS (2)
  1. IMBRUVICA [Suspect]
     Active Substance: IBRUTINIB
     Indication: Product used for unknown indication
     Route: 048
  2. LACTASE [Concomitant]
     Active Substance: LACTASE
     Indication: Product used for unknown indication
     Route: 048

REACTIONS (7)
  - Disease progression [Unknown]
  - Change of bowel habit [Unknown]
  - Lactose intolerance [Unknown]
  - Gastrointestinal motility disorder [Unknown]
  - Frequent bowel movements [Unknown]
  - Fatigue [Unknown]
  - Faeces soft [Unknown]
